FAERS Safety Report 5960798-8 (Version None)
Quarter: 2008Q4

REPORT INFORMATION
  Report Type: 
  Country: None (occurrence: None)
  Receive Date: 20081120
  Receipt Date: 20081112
  Transmission Date: 20090506
  Serious: Yes (Hospitalization)
  Sender: FDA-Public Use
  Company Number: PHHO2008DE08557

PATIENT
  Sex: Male

DRUGS (3)
  1. ZOLEDRONATE T29581+SOLINJ+BM [Suspect]
     Indication: METASTASES TO BONE
     Dosage: 4 MG EVERY 3-4 WEEKS
     Route: 042
     Dates: start: 20070926, end: 20080613
  2. CALCIUM [Concomitant]
     Indication: METASTASES TO BONE
     Dosage: UNK
     Dates: start: 20070926
  3. VITAMIN D [Concomitant]
     Indication: METASTASES TO BONE
     Dosage: UNK
     Dates: start: 20070926

REACTIONS (5)
  - ANAEMIA [None]
  - BLOOD GLUCOSE INCREASED [None]
  - DIABETES MELLITUS [None]
  - FATIGUE [None]
  - THIRST [None]
